FAERS Safety Report 8911127 (Version 1)
Quarter: 2012Q4

REPORT INFORMATION
  Report Type: 
  Country: PR (occurrence: PR)
  Receive Date: 20121116
  Receipt Date: 20121116
  Transmission Date: 20130627
  Serious: Yes (Other)
  Sender: FDA-Public Use
  Company Number: PR-BRISTOL-MYERS SQUIBB COMPANY-17112426

PATIENT
  Age: 45 Year
  Sex: Female

DRUGS (1)
  1. SPRYCEL [Suspect]
     Indication: CHRONIC MYELOID LEUKAEMIA

REACTIONS (2)
  - Pleural effusion [Unknown]
  - Chylothorax [Unknown]
